FAERS Safety Report 11914583 (Version 1)
Quarter: 2016Q1

REPORT INFORMATION
  Report Type: Spontaneous
  Country: FR (occurrence: FR)
  Receive Date: 20160113
  Receipt Date: 20160113
  Transmission Date: 20160526
  Serious: Yes (Hospitalization, Other)
  Sender: FDA-Public Use
  Company Number: FR-MEDTRONIC-1046465

PATIENT
  Age: 47 Year
  Sex: Male

DRUGS (1)
  1. BACLOFEN UNKNOWN [Suspect]
     Active Substance: BACLOFEN
     Route: 037
     Dates: start: 201203

REACTIONS (11)
  - Congestive cardiomyopathy [None]
  - Ventricular hypokinesia [None]
  - Nuclear magnetic resonance imaging abnormal [None]
  - Left ventricular failure [None]
  - Ejection fraction decreased [None]
  - Sinus tachycardia [None]
  - Dilatation ventricular [None]
  - Systemic inflammatory response syndrome [None]
  - Ventricular dysfunction [None]
  - Echocardiogram abnormal [None]
  - Tachycardia induced cardiomyopathy [None]
